FAERS Safety Report 21657603 (Version 1)
Quarter: 2022Q4

REPORT INFORMATION
  Report Type: Spontaneous
  Country: US (occurrence: None)
  Receive Date: 20221128
  Receipt Date: 20221128
  Transmission Date: 20230113
  Serious: Yes (unspecified)
  Sender: FDA-Public Use
  Company Number: None

PATIENT
  Age: 64 Year
  Sex: Female
  Weight: 63.9 kg

DRUGS (4)
  1. ALENDRONATE [Suspect]
     Active Substance: ALENDRONATE SODIUM
     Indication: Osteoporosis
     Dosage: OTHER QUANTITY : 12 TABLET(S);?OTHER FREQUENCY : WEEKLY;?
     Route: 048
  2. LOSARTAN [Concomitant]
     Active Substance: LOSARTAN
  3. ASPIRIN [Concomitant]
     Active Substance: ASPIRIN
  4. DAILY VITAMIN (CENTRUM WOMEN 50+) [Concomitant]

REACTIONS (9)
  - Rash erythematous [None]
  - Rash [None]
  - Rash [None]
  - Rash [None]
  - Rash [None]
  - Pruritus [None]
  - Pain [None]
  - Loss of personal independence in daily activities [None]
  - Sleep disorder [None]

NARRATIVE: CASE EVENT DATE: 20221009
